FAERS Safety Report 7275547-3 (Version None)
Quarter: 2011Q1

REPORT INFORMATION
  Report Type: 
  Country: None (occurrence: None)
  Receive Date: 20110204
  Receipt Date: 20110202
  Transmission Date: 20110831
  Serious: Yes (Hospitalization)
  Sender: FDA-Public Use
  Company Number: US-ABBOTT-11P-163-0702058-00

PATIENT
  Sex: Male
  Weight: 68.1 kg

DRUGS (2)
  1. HUMIRA [Suspect]
     Route: 058
  2. HUMIRA [Suspect]
     Indication: PSORIASIS
     Route: 058
     Dates: start: 20101101, end: 20101101

REACTIONS (6)
  - POST PROCEDURAL BILE LEAK [None]
  - BLOOD PRESSURE INCREASED [None]
  - PSORIASIS [None]
  - GALLBLADDER DISORDER [None]
  - GALLBLADDER PAIN [None]
  - CELLULITIS [None]
